FAERS Safety Report 9031773 (Version 1)
Quarter: 2013Q1

REPORT INFORMATION
  Report Type: Spontaneous
  Country: US (occurrence: US)
  Receive Date: 20130124
  Receipt Date: 20130124
  Transmission Date: 20140127
  Serious: Yes (Other)
  Sender: FDA-Public Use
  Company Number: US-PFIZER INC-2013024128

PATIENT
  Age: 65 Year
  Sex: Female

DRUGS (1)
  1. DOXYCYCLINE CALCIUM [Suspect]
     Indication: ROSACEA
     Dosage: UNK
     Route: 048

REACTIONS (4)
  - Gastric mucosal hypertrophy [Recovered/Resolved]
  - Gastrointestinal mucosal necrosis [Recovered/Resolved]
  - Toxicity to various agents [Recovered/Resolved]
  - Angiopathy [Recovered/Resolved]
